FAERS Safety Report 12549547 (Version 9)
Quarter: 2021Q3

REPORT INFORMATION
  Report Type: Report from Study
  Country: PA (occurrence: PA)
  Receive Date: 20160712
  Receipt Date: 20210728
  Transmission Date: 20211014
  Serious: Yes (Other)
  Sender: FDA-Public Use
  Company Number: PHHY2015PA036927

PATIENT
  Age: 46 Year
  Sex: Female
  Weight: 64.4 kg

DRUGS (7)
  1. TYLENOL [Concomitant]
     Active Substance: ACETAMINOPHEN
     Indication: PRODUCT USED FOR UNKNOWN INDICATION
     Dosage: 1 DF, QD
     Route: 048
  2. VITAMIN B COMPLEX [Concomitant]
     Active Substance: CYANOCOBALAMIN\DEXPANTHENOL\NIACINAMIDE\PYRIDOXINE HYDROCHLORIDE\RIBOFLAVIN 5^-PHOSPHATE SODIUM\THIAMINE HYDROCHLORIDE\VITAMIN B COMPLEX
     Indication: PRODUCT USED FOR UNKNOWN INDICATION
     Dosage: UNK
     Route: 065
  3. GILENYA [Suspect]
     Active Substance: FINGOLIMOD HYDROCHLORIDE
     Dosage: 0.5 MG, QD
     Route: 048
     Dates: start: 20150324
  4. ZOLPIDEM [Concomitant]
     Active Substance: ZOLPIDEM TARTRATE
     Indication: SLEEP DISORDER
     Dosage: 0.5 DF, QD
     Route: 065
  5. FOLIC ACID. [Concomitant]
     Active Substance: FOLIC ACID
     Indication: PRODUCT USED FOR UNKNOWN INDICATION
     Dosage: UNK
     Route: 065
  6. GILENYA [Suspect]
     Active Substance: FINGOLIMOD HYDROCHLORIDE
     Indication: MULTIPLE SCLEROSIS
     Dosage: 0.5 MG, QD
     Route: 048
  7. GILENYA [Suspect]
     Active Substance: FINGOLIMOD HYDROCHLORIDE
     Dosage: 0.25 MG, QD
     Route: 048
     Dates: start: 2013

REACTIONS (52)
  - Mobility decreased [Not Recovered/Not Resolved]
  - COVID-19 [Not Recovered/Not Resolved]
  - Fatigue [Unknown]
  - Pain in extremity [Unknown]
  - Pyrexia [Not Recovered/Not Resolved]
  - Musculoskeletal chest pain [Not Recovered/Not Resolved]
  - Abdominal discomfort [Unknown]
  - Intervertebral disc disorder [Unknown]
  - Contusion [Unknown]
  - Muscle spasms [Unknown]
  - Feeling abnormal [Unknown]
  - Dysuria [Not Recovered/Not Resolved]
  - Urine odour abnormal [Unknown]
  - Bladder disorder [Unknown]
  - Neuromyelitis optica spectrum disorder [Unknown]
  - Burning sensation [Unknown]
  - Device related infection [Unknown]
  - Head discomfort [Unknown]
  - Poor quality sleep [Unknown]
  - Dyskinesia [Recovering/Resolving]
  - Inappropriate schedule of product administration [Unknown]
  - Central nervous system lesion [Not Recovered/Not Resolved]
  - Multiple sclerosis relapse [Recovering/Resolving]
  - Headache [Unknown]
  - Pain [Not Recovered/Not Resolved]
  - Muscular weakness [Unknown]
  - Peripheral swelling [Unknown]
  - Illness [Unknown]
  - Movement disorder [Not Recovered/Not Resolved]
  - Neurogenic bladder [Recovering/Resolving]
  - Urinary tract infection [Unknown]
  - Muscle swelling [Not Recovered/Not Resolved]
  - Vertebral osteophyte [Unknown]
  - Gait disturbance [Unknown]
  - Nerve injury [Unknown]
  - Fall [Not Recovered/Not Resolved]
  - Chromaturia [Unknown]
  - Limb discomfort [Not Recovered/Not Resolved]
  - Decreased immune responsiveness [Not Recovered/Not Resolved]
  - Diplegia [Unknown]
  - Back pain [Not Recovered/Not Resolved]
  - Balance disorder [Unknown]
  - Malaise [Unknown]
  - Sciatica [Not Recovered/Not Resolved]
  - Paraesthesia [Unknown]
  - Dizziness [Unknown]
  - Urinary incontinence [Unknown]
  - Tendonitis [Unknown]
  - Anxiety [Unknown]
  - Swelling [Unknown]
  - Vertigo [Unknown]
  - Bladder disorder [Recovered/Resolved]

NARRATIVE: CASE EVENT DATE: 201707
